FAERS Safety Report 5305759-7 (Version None)
Quarter: 2007Q2

REPORT INFORMATION
  Report Type: 
  Country: None (occurrence: None)
  Receive Date: 20070419
  Receipt Date: 20070419
  Transmission Date: 20071010
  Serious: Yes (Hospitalization, Disabling)
  Sender: FDA-Public Use
  Company Number: None

PATIENT
  Sex: Male
  Weight: 79.3795 kg

DRUGS (1)
  1. METHOTREXATE [Suspect]
     Indication: BURKITT'S LYMPHOMA
     Dosage: 12MG  EVERY 28 DAYS  IT
     Route: 038
     Dates: start: 20060915, end: 20061215

REACTIONS (2)
  - APHASIA [None]
  - MUTISM [None]
